FAERS Safety Report 8479242-4 (Version None)
Quarter: 2012Q2

REPORT INFORMATION
  Report Type: 
  Country: None (occurrence: None)
  Receive Date: 20120629
  Receipt Date: 20120620
  Transmission Date: 20120825
  Serious: Yes (Hospitalization)
  Sender: FDA-Public Use
  Company Number: US-GLAXOSMITHKLINE-A0875834A

PATIENT
  Age: 70 Year
  Sex: Male

DRUGS (8)
  1. TOPROL-XL [Concomitant]
  2. LOPID [Concomitant]
  3. HYDROCHLOROTHIAZIDE [Concomitant]
  4. CARDIZEM CD [Concomitant]
  5. AVANDIA [Suspect]
     Indication: DIABETES MELLITUS
     Route: 048
     Dates: start: 20020101
  6. ACEON [Concomitant]
  7. PROTONIX [Concomitant]
  8. PRAVACHOL [Concomitant]

REACTIONS (2)
  - CARDIAC FAILURE CONGESTIVE [None]
  - CARDIOMEGALY [None]
